FAERS Safety Report 21119692 (Version 2)
Quarter: 2022Q3

REPORT INFORMATION
  Report Type: Report from Study
  Country: ES (occurrence: ES)
  Receive Date: 20220722
  Receipt Date: 20220830
  Transmission Date: 20221027
  Serious: No
  Sender: FDA-Public Use
  Company Number: ES-TAKEDA-2022TUS048575

PATIENT
  Age: 2 Year
  Sex: Male

DRUGS (12)
  1. TEDUGLUTIDE [Suspect]
     Active Substance: TEDUGLUTIDE
     Indication: Short-bowel syndrome
     Dosage: 0.3 MILLIGRAM, QD
     Route: 042
     Dates: start: 202109, end: 20220425
  2. TEDUGLUTIDE [Suspect]
     Active Substance: TEDUGLUTIDE
     Indication: Short-bowel syndrome
     Dosage: 0.3 MILLIGRAM, QD
     Route: 042
     Dates: start: 202109, end: 20220425
  3. TEDUGLUTIDE [Suspect]
     Active Substance: TEDUGLUTIDE
     Indication: Short-bowel syndrome
     Dosage: 0.3 MILLIGRAM, QD
     Route: 042
     Dates: start: 202109, end: 20220425
  4. TEDUGLUTIDE [Suspect]
     Active Substance: TEDUGLUTIDE
     Indication: Short-bowel syndrome
     Dosage: 0.3 MILLIGRAM, QD
     Route: 042
     Dates: start: 202109, end: 20220425
  5. TEDUGLUTIDE [Suspect]
     Active Substance: TEDUGLUTIDE
     Dosage: 0.35 MILLIGRAM, QD
     Route: 042
     Dates: start: 20220425
  6. TEDUGLUTIDE [Suspect]
     Active Substance: TEDUGLUTIDE
     Dosage: 0.35 MILLIGRAM, QD
     Route: 042
     Dates: start: 20220425
  7. TEDUGLUTIDE [Suspect]
     Active Substance: TEDUGLUTIDE
     Dosage: 0.35 MILLIGRAM, QD
     Route: 042
     Dates: start: 20220425
  8. TEDUGLUTIDE [Suspect]
     Active Substance: TEDUGLUTIDE
     Dosage: 0.35 MILLIGRAM, QD
     Route: 042
     Dates: start: 20220425
  9. HIBOR [Concomitant]
     Indication: Thrombosis
     Dosage: 1300 INTERNATIONAL UNIT
     Route: 042
     Dates: start: 20210620
  10. RIFAXIMIN [Concomitant]
     Active Substance: RIFAXIMIN
     Dosage: 64 MILLIGRAM, MONTHLY
     Route: 048
     Dates: start: 2021
  11. VITAMIN A [Concomitant]
     Active Substance: VITAMIN A
     Indication: Hypovitaminosis
     Dosage: 2500 INTERNATIONAL UNIT, 2/WEEK
     Route: 048
     Dates: start: 2021
  12. VITAMIN D [Concomitant]
     Active Substance: VITAMIN D NOS
     Indication: Bone development abnormal
     Dosage: 400 INTERNATIONAL UNIT, QD
     Route: 048
     Dates: start: 2019, end: 2020

REACTIONS (1)
  - Device malfunction [Recovered/Resolved]

NARRATIVE: CASE EVENT DATE: 20211010
